FAERS Safety Report 5148170-4 (Version None)
Quarter: 2006Q4

REPORT INFORMATION
  Report Type: 
  Country: None (occurrence: None)
  Receive Date: 20061106
  Receipt Date: 20061026
  Transmission Date: 20070319
  Serious: Yes (Other)
  Sender: FDA-Public Use
  Company Number: 2006BH014377

PATIENT

DRUGS (6)
  1. DEXAMETHASONE 4MG TAB [Suspect]
     Indication: NON-HODGKIN'S LYMPHOMA
     Dosage: 40  IVDRIP
     Route: 041
  2. CYCLOPHOSPHAMIDE [Suspect]
     Indication: NON-HODGKIN'S LYMPHOMA
     Dosage: 60 MG/KG;IV DRIP
     Route: 041
  3. ETOPOSIDE [Suspect]
     Indication: NON-HODGKIN'S LYMPHOMA
     Dosage: 300 MG/M**2;IV DRI
     Route: 041
  4. MELPHALAN              (MELPHALAN) [Suspect]
     Indication: NON-HODGKIN'S LYMPHOMA
     Dosage: 130 MG;M**2;IV DRI
     Route: 041
  5. RITUXAN [Suspect]
     Indication: NON-HODGKIN'S LYMPHOMA
     Dosage: 375 MG;M**2
  6. NEUPOGEN [Concomitant]

REACTIONS (1)
  - STAPHYLOCOCCAL INFECTION [None]
